FAERS Safety Report 4295787-5 (Version None)
Quarter: 2004Q1

REPORT INFORMATION
  Report Type: 
  Country: None (occurrence: None)
  Receive Date: 20040216
  Receipt Date: 20031103
  Transmission Date: 20041129
  Serious: Yes (Other)
  Sender: FDA-Public Use
  Company Number: US-GLAXOSMITHKLINE-A0432631A

PATIENT
  Age: 8 Year
  Sex: Male

DRUGS (1)
  1. LAMOTRIGINE [Suspect]
     Route: 048

REACTIONS (2)
  - CONVULSION [None]
  - INSOMNIA [None]
